FAERS Safety Report 7523804-5 (Version None)
Quarter: 2011Q2

REPORT INFORMATION
  Report Type: 
  Country: None (occurrence: None)
  Receive Date: 20110603
  Receipt Date: 20110525
  Transmission Date: 20111010
  Serious: Yes (Hospitalization)
  Sender: FDA-Public Use
  Company Number: US-ACTELION-A-US2011-49531

PATIENT

DRUGS (3)
  1. PROCRIT [Concomitant]
  2. TRACLEER [Suspect]
     Indication: PULMONARY ARTERIAL HYPERTENSION
     Dosage: UNK
     Route: 048
     Dates: start: 20060106
  3. CALCIUM CHANNEL BLOCKERS [Concomitant]

REACTIONS (2)
  - ANAEMIA [None]
  - INFLUENZA [None]
